FAERS Safety Report 14354565 (Version 3)
Quarter: 2018Q2

REPORT INFORMATION
  Report Type: Spontaneous
  Country: US (occurrence: US)
  Receive Date: 20180105
  Receipt Date: 20180611
  Transmission Date: 20180711
  Serious: No
  Sender: FDA-Public Use
  Company Number: US-009507513-1801USA001741

PATIENT
  Age: 38 Year
  Sex: Male

DRUGS (3)
  1. INTRON A [Suspect]
     Active Substance: INTERFERON ALFA-2B
     Dosage: 2ML 3 TIMES A WEEK
     Route: 058
     Dates: start: 20170819
  2. INTRON A [Suspect]
     Active Substance: INTERFERON ALFA-2B
     Indication: MALIGNANT MELANOMA
     Dosage: 2ML 3 TIMES A WEEK
     Route: 058
     Dates: start: 20170819
  3. TRIAMCINOLONE [Concomitant]
     Active Substance: TRIAMCINOLONE

REACTIONS (3)
  - Rash [Unknown]
  - Rash [Unknown]
  - Liver function test increased [Unknown]

NARRATIVE: CASE EVENT DATE: 2017
